FAERS Safety Report 6496019-X (Version None)
Quarter: 2009Q4

REPORT INFORMATION
  Report Type: 
  Country: None (occurrence: None)
  Receive Date: 20091214
  Receipt Date: 20090922
  Transmission Date: 20100525
  Serious: No
  Sender: FDA-Public Use
  Company Number: US-BRISTOL-MYERS SQUIBB COMPANY-14781801

PATIENT
  Age: 71 Year
  Sex: Female

DRUGS (2)
  1. ABILIFY [Suspect]
     Indication: SCHIZOPHRENIA
     Dosage: TABS APPROXIAMTELY 14-SEP-2009
     Dates: start: 20090901
  2. INVEGA [Suspect]
     Dosage: DOSAGE INCREASED FROM 3MG TO 6MG.

REACTIONS (1)
  - ABNORMAL BEHAVIOUR [None]
